FAERS Safety Report 7941604-9 (Version None)
Quarter: 2011Q4

REPORT INFORMATION
  Report Type: 
  Country: None (occurrence: None)
  Receive Date: 20111128
  Receipt Date: 20111115
  Transmission Date: 20120403
  Serious: Yes (Other)
  Sender: FDA-Public Use
  Company Number: GB-NAPPMUNDI-GBR-2011-0008465

PATIENT
  Sex: Male
  Weight: 115.4 kg

DRUGS (17)
  1. OXYCODONE HCL [Concomitant]
     Indication: PAIN
     Dosage: 10 MG, Q4H, PRN
     Dates: start: 20110616
  2. INFUMORPH [Concomitant]
     Indication: MUSCLE STRAIN
     Dosage: 120 MG, DAILY
     Route: 048
     Dates: start: 20110505
  3. VENLAFAXINE [Concomitant]
     Indication: ANXIETY
     Dosage: 150 MG, DAILY
     Route: 048
     Dates: start: 20081110
  4. HYDROMORPHONE HCL [Suspect]
     Dosage: 24 MG, DAILY
     Route: 048
     Dates: start: 20110217, end: 20110217
  5. DIAZEPAM [Concomitant]
     Dosage: 10 MG/ML, PRN
     Route: 054
  6. HYDROMORPHONE HCL IR CAPSULES [Concomitant]
     Indication: PAIN
     Dosage: UNK, SEE TEXT
     Dates: start: 20110217, end: 20110311
  7. HYDROMORPHONE HCL [Suspect]
     Dosage: 32 MG, DAILY
     Route: 048
     Dates: start: 20110218, end: 20110223
  8. MORPHINE [Concomitant]
     Indication: PRODUCT USED FOR UNKNOWN INDICATION
     Dosage: 90 (60 + 30) MG, BID
     Route: 065
  9. DIHYDROCODEINE BITARTRATE [Concomitant]
     Dosage: 120 MG, BID
     Route: 048
     Dates: start: 20100118
  10. HYDROMORPHONE HCL [Suspect]
     Indication: PAIN
     Dosage: 48 MG, DAILY
     Route: 048
     Dates: start: 20110304, end: 20110505
  11. HYDROMORPHONE HCL [Suspect]
     Dosage: 40 MG, DAILY
     Route: 048
     Dates: start: 20110224, end: 20110303
  12. HYDROMORPHONE HCL IR CAPSULES [Concomitant]
     Dosage: 2.6 MG, THRICE
     Dates: start: 20110311, end: 20110504
  13. DIAZEPAM [Concomitant]
     Indication: MUSCLE SPASMS
     Dosage: 10 MG, TID
     Route: 048
     Dates: start: 20040601
  14. VENLAFAXINE [Concomitant]
     Indication: DEPRESSION
     Dosage: 225 MG, DAILY
     Dates: start: 20110523
  15. ZOPLICONE [Concomitant]
     Indication: SLEEP DISORDER
     Dosage: 7.5 MG, DAILY
     Route: 048
     Dates: start: 20110510
  16. DIHYDROCODEINE BITARTRATE [Concomitant]
     Indication: PRODUCT USED FOR UNKNOWN INDICATION
     Dosage: 30 MG, DAILY
     Route: 048
     Dates: start: 20110513
  17. INFUMORPH [Concomitant]
     Indication: MUSCLE SPASMS
     Dosage: 30 MG, BID
     Dates: start: 20110609

REACTIONS (1)
  - TOOTH LOSS [None]
